FAERS Safety Report 4338518-2 (Version None)
Quarter: 2004Q2

REPORT INFORMATION
  Report Type: 
  Country: None (occurrence: None)
  Receive Date: 20040414
  Receipt Date: 20040409
  Transmission Date: 20050107
  Serious: Yes (Death, Hospitalization)
  Sender: FDA-Public Use
  Company Number: FR-GLAXOSMITHKLINE-B0329517A

PATIENT
  Age: 68 Year
  Sex: Female
  Weight: 65 kg

DRUGS (4)
  1. AUGMENTIN [Suspect]
     Indication: SEPTIC SHOCK
     Dosage: 1G THREE TIMES PER DAY
     Route: 042
     Dates: start: 20040320, end: 20040325
  2. HEPARINE CHOAY [Suspect]
     Route: 042
     Dates: start: 20040322, end: 20040324
  3. CORDARONE [Suspect]
     Dosage: 300MG PER DAY
     Route: 042
     Dates: start: 20040320, end: 20040324
  4. NORADRENALINE [Concomitant]
     Route: 042
     Dates: start: 20040301

REACTIONS (3)
  - RENAL FAILURE [None]
  - SEPTIC SHOCK [None]
  - THROMBOCYTOPENIA [None]
